FAERS Safety Report 16290712 (Version 1)
Quarter: 2019Q2

REPORT INFORMATION
  Report Type: Spontaneous
  Country: US (occurrence: US)
  Receive Date: 20190509
  Receipt Date: 20190509
  Transmission Date: 20190711
  Serious: Yes (Hospitalization)
  Sender: FDA-Public Use
  Company Number: US-TEVA-2019-US-1046730

PATIENT
  Age: 82 Year
  Sex: Female
  Weight: 67.5 kg

DRUGS (2)
  1. LEVOFLOXACIN. [Suspect]
     Active Substance: LEVOFLOXACIN
     Indication: ESCHERICHIA URINARY TRACT INFECTION
     Dosage: 750 MILLIGRAM DAILY; 2 NON-CONSECUTIVE DAYS
     Route: 048
  2. QUETIAPINE. [Concomitant]
     Active Substance: QUETIAPINE
     Indication: PRODUCT USED FOR UNKNOWN INDICATION
     Route: 048

REACTIONS (2)
  - Neurotoxicity [Recovered/Resolved]
  - Myoclonus [Recovered/Resolved]
